FAERS Safety Report 16446859 (Version 1)
Quarter: 2019Q2

REPORT INFORMATION
  Report Type: Spontaneous
  Country: JP (occurrence: JP)
  Receive Date: 20190618
  Receipt Date: 20190618
  Transmission Date: 20190711
  Serious: Yes (Hospitalization)
  Sender: FDA-Public Use
  Company Number: JP-PFIZER INC-2019250716

PATIENT

DRUGS (1)
  1. RELPAX [Suspect]
     Active Substance: ELETRIPTAN HYDROBROMIDE
     Dosage: 2 DF, UNK (2 TABLETS)
     Route: 048

REACTIONS (2)
  - Migraine [Recovered/Resolved]
  - Confusional state [Recovered/Resolved]
